FAERS Safety Report 11152187 (Version 1)
Quarter: 2015Q2

REPORT INFORMATION
  Report Type: Spontaneous
  Country: US (occurrence: US)
  Receive Date: 20150601
  Receipt Date: 20150601
  Transmission Date: 20150821
  Serious: No
  Sender: FDA-Public Use
  Company Number: US-PFIZER INC-2015176441

PATIENT
  Sex: Female

DRUGS (1)
  1. HYDROCORTISONE. [Suspect]
     Active Substance: HYDROCORTISONE
     Dosage: 5 MG, UNK

REACTIONS (4)
  - Abdominal pain upper [Unknown]
  - Body temperature decreased [Recovered/Resolved]
  - Pain [Unknown]
  - Constipation [Recovering/Resolving]
